FAERS Safety Report 24701690 (Version 1)
Quarter: 2024Q4

REPORT INFORMATION
  Report Type: Spontaneous
  Country: US (occurrence: None)
  Receive Date: 20241204
  Receipt Date: 20241204
  Transmission Date: 20250115
  Serious: Yes (Hospitalization)
  Sender: Public
  Company Number: None

PATIENT
  Age: 77 Year
  Sex: Male
  Weight: 105.69 kg

DRUGS (2)
  1. DEVICE [Suspect]
     Active Substance: DEVICE
  2. CEFAZOLIN [Suspect]
     Active Substance: CEFAZOLIN

REACTIONS (3)
  - Complication of device removal [None]
  - Device kink [None]
  - Pruritus [None]

NARRATIVE: CASE EVENT DATE: 20241010
